FAERS Safety Report 15477614 (Version 1)
Quarter: 2018Q4

REPORT INFORMATION
  Report Type: Spontaneous
  Country: US (occurrence: US)
  Receive Date: 20181009
  Receipt Date: 20181009
  Transmission Date: 20190205
  Serious: Yes (Other)
  Sender: FDA-Public Use
  Company Number: US-BAYER-2018-184784

PATIENT
  Sex: Male

DRUGS (2)
  1. ACETYLSALICYLIC ACID({=100 MG) [Suspect]
     Active Substance: ASPIRIN
  2. HEPARIN [Interacting]
     Active Substance: HEPARIN SODIUM

REACTIONS (5)
  - Pulmonary alveolar haemorrhage [None]
  - Labelled drug-drug interaction medication error [None]
  - Off label use [None]
  - Product use in unapproved indication [None]
  - Product administration error [None]
